FAERS Safety Report 11830381 (Version 3)
Quarter: 2015Q4

REPORT INFORMATION
  Report Type: Spontaneous
  Country: US (occurrence: US)
  Receive Date: 20151214
  Receipt Date: 20151214
  Transmission Date: 20160305
  Serious: Yes (Disabling)
  Sender: FDA-Public Use
  Company Number: US-JNJFOC-20151108431

PATIENT
  Age: 37 Year
  Sex: Female
  Weight: 61.24 kg

DRUGS (7)
  1. LEVAQUIN [Suspect]
     Active Substance: LEVOFLOXACIN
     Indication: BRONCHITIS
     Route: 048
     Dates: start: 20061124, end: 20061130
  2. FISH OIL [Concomitant]
     Active Substance: FISH OIL
     Route: 065
  3. NATURE-THROID [Concomitant]
     Active Substance: THYROID, PORCINE
     Route: 065
  4. VITAMIN C [Concomitant]
     Active Substance: ASCORBIC ACID
     Route: 065
  5. LEVAQUIN [Suspect]
     Active Substance: LEVOFLOXACIN
     Indication: BRONCHITIS
     Route: 048
     Dates: start: 20070908
  6. CYTOMEL [Concomitant]
     Active Substance: LIOTHYRONINE SODIUM
     Route: 065
  7. LEVAQUIN [Suspect]
     Active Substance: LEVOFLOXACIN
     Indication: BRONCHITIS
     Route: 048
     Dates: start: 20080131

REACTIONS (10)
  - Basedow^s disease [Unknown]
  - Limb discomfort [Unknown]
  - Arthralgia [Unknown]
  - Dyspnoea [Unknown]
  - Muscular weakness [Unknown]
  - Psoriasis [Not Recovered/Not Resolved]
  - Dizziness [Unknown]
  - Fatigue [Unknown]
  - Paraesthesia [Not Recovered/Not Resolved]
  - Asthenia [Not Recovered/Not Resolved]
